FAERS Safety Report 9557898 (Version 3)
Quarter: 2013Q4

REPORT INFORMATION
  Report Type: Report from Study
  Country: FR (occurrence: FR)
  Receive Date: 20130926
  Receipt Date: 20131028
  Transmission Date: 20140711
  Serious: Yes (Death, Hospitalization, Disabling)
  Sender: FDA-Public Use
  Company Number: FR-CELGENEUS-056-C4047-13053049

PATIENT
  Age: 69 Year
  Sex: Male
  Weight: 70 kg

DRUGS (6)
  1. CC-4047 [Suspect]
     Indication: PLASMA CELL MYELOMA
     Dosage: 4 MILLIGRAM
     Route: 048
     Dates: start: 20130401, end: 20130502
  2. CC-4047 [Suspect]
     Dosage: 2 MILLIGRAM
     Route: 048
     Dates: start: 20130505, end: 20130606
  3. DEXAMETHASONE [Concomitant]
     Indication: PLASMA CELL MYELOMA
     Route: 065
     Dates: start: 2013
  4. DEXAMETHASONE [Concomitant]
     Route: 065
     Dates: start: 2011
  5. DEXAMETHASONE [Concomitant]
     Route: 065
     Dates: start: 2008
  6. LMWH [Concomitant]
     Indication: PROPHYLAXIS
     Route: 065

REACTIONS (6)
  - Pyrexia [Fatal]
  - Pyrexia [Fatal]
  - Neutropenia [Fatal]
  - Plasma cell myeloma [Fatal]
  - Anaemia [Not Recovered/Not Resolved]
  - Thrombocytopenia [Not Recovered/Not Resolved]
